FAERS Safety Report 16540360 (Version 1)
Quarter: 2019Q3

REPORT INFORMATION
  Report Type: Report from Study
  Country: BR (occurrence: BR)
  Receive Date: 20190708
  Receipt Date: 20190708
  Transmission Date: 20191004
  Serious: Yes (Life-Threatening, Hospitalization, Other)
  Sender: FDA-Public Use
  Company Number: PHHY2019BR156953

PATIENT
  Age: 68 Year
  Sex: Male

DRUGS (3)
  1. DIOVAN [Suspect]
     Active Substance: VALSARTAN
     Indication: HYPERTENSION
     Dosage: UNK
     Route: 065
     Dates: end: 20190617
  2. ENTRESTO [Suspect]
     Active Substance: SACUBITRIL\VALSARTAN
     Indication: CARDIAC FAILURE
     Dosage: 1 DF (24 MG/26 MG ), BID (MORNING AND NIGHT)
     Route: 065
     Dates: start: 20190618
  3. CONCOR [Concomitant]
     Active Substance: BISOPROLOL FUMARATE
     Indication: PRODUCT USED FOR UNKNOWN INDICATION
     Route: 065

REACTIONS (11)
  - Blindness unilateral [Unknown]
  - Spinal disorder [Recovering/Resolving]
  - Retinal detachment [Unknown]
  - Angina pectoris [Unknown]
  - Dyspnoea [Recovering/Resolving]
  - Hypertension [Unknown]
  - Peripheral swelling [Recovering/Resolving]
  - Feeling abnormal [Unknown]
  - Angina unstable [Unknown]
  - Diabetes mellitus inadequate control [Unknown]
  - Ill-defined disorder [Unknown]

NARRATIVE: CASE EVENT DATE: 201407
